FAERS Safety Report 7101757-1 (Version None)
Quarter: 2010Q4

REPORT INFORMATION
  Report Type: 
  Country: None (occurrence: None)
  Receive Date: 20101115
  Receipt Date: 20101104
  Transmission Date: 20110411
  Serious: Yes (Hospitalization)
  Sender: FDA-Public Use
  Company Number: US-SANOFI-AVENTIS-2010SA061281

PATIENT
  Age: 79 Year
  Sex: Male

DRUGS (3)
  1. MULTAQ [Suspect]
     Indication: ATRIAL FIBRILLATION
     Route: 048
     Dates: start: 20100528, end: 20100529
  2. COUMADIN [Concomitant]
  3. CARDIZEM [Concomitant]

REACTIONS (3)
  - ATRIAL FIBRILLATION [None]
  - CONFUSIONAL STATE [None]
  - MYALGIA [None]
